FAERS Safety Report 8908211 (Version 4)
Quarter: 2012Q4

REPORT INFORMATION
  Report Type: 
  Country: BR (occurrence: BR)
  Receive Date: 20121114
  Receipt Date: 20121213
  Transmission Date: 20130627
  Serious: Yes (Hospitalization)
  Sender: FDA-Public Use
  Company Number: PHHY2012BR080080

PATIENT
  Sex: Female
  Weight: 64 kg

DRUGS (7)
  1. EXELON PATCH [Suspect]
     Indication: DEMENTIA ALZHEIMER^S TYPE
     Dosage: 4.6 mg / 24 hours
     Route: 062
     Dates: start: 201208
  2. EXELON PATCH [Suspect]
     Indication: COGNITIVE DISORDER
     Dosage: 9.5 mg/ 24hrs
     Route: 062
  3. EXELON PATCH [Suspect]
     Indication: DISORIENTATION
  4. EXELON PATCH [Suspect]
     Indication: MEMORY IMPAIRMENT
  5. RYTMONORM [Concomitant]
     Indication: CARDIAC DISORDER
     Dosage: UNK UKN, UNK
     Dates: start: 2004
  6. FORASEQ [Concomitant]
     Indication: ASTHMA
  7. GLIBENCLAMIDE [Concomitant]
     Indication: DIABETES MELLITUS
     Dosage: 0.5 DF (2.5 mg) daily

REACTIONS (13)
  - Pneumonia [Recovering/Resolving]
  - Blood glucose increased [Not Recovered/Not Resolved]
  - Movement disorder [Not Recovered/Not Resolved]
  - Daydreaming [Recovering/Resolving]
  - Blood glucose decreased [Recovered/Resolved]
  - Somnolence [Not Recovered/Not Resolved]
  - Disorientation [Recovering/Resolving]
  - Influenza [Unknown]
  - Memory impairment [Recovering/Resolving]
  - Cognitive disorder [Recovering/Resolving]
  - Nasopharyngitis [Recovered/Resolved]
  - Cough [Recovered/Resolved]
  - Drug ineffective [Unknown]
